FAERS Safety Report 10993510 (Version 2)
Quarter: 2015Q4

REPORT INFORMATION
  Report Type: Spontaneous
  Country: GB (occurrence: GB)
  Receive Date: 20150407
  Receipt Date: 20151117
  Transmission Date: 20160304
  Serious: Yes (Other)
  Sender: FDA-Public Use
  Company Number: GB-MERCK-1504GBR000192

PATIENT
  Age: 59 Year
  Sex: Female
  Weight: 85 kg

DRUGS (14)
  1. CARBOCYSTEINE [Concomitant]
     Active Substance: CARBOCYSTEINE
  2. LEVOTHYROXINE SODIUM. [Concomitant]
     Active Substance: LEVOTHYROXINE SODIUM
     Dosage: UNK,STILL ON THIS
  3. METFOREM [Concomitant]
     Active Substance: METFORMIN HYDROCHLORIDE
     Dosage: STILL ON THIS.
     Dates: start: 20140321
  4. ALENDRONIC ACID [Concomitant]
     Active Substance: ALENDRONIC ACID
     Dosage: STILL ON THIS.
     Dates: start: 20110728
  5. SIMVASTATIN. [Suspect]
     Active Substance: SIMVASTATIN
     Dosage: 40 MG, QD,AT NIGHT
     Route: 048
  6. HYDROXYZINE HYDROCHLORIDE. [Interacting]
     Active Substance: HYDROXYZINE HYDROCHLORIDE
     Dosage: 25 MG, QD,AT NIGHT
     Route: 048
  7. CALCIUM CARBONATE. [Concomitant]
     Active Substance: CALCIUM CARBONATE
     Dosage: STILL ON THIS.
     Dates: start: 20110728
  8. TIOTROPIUM BROMIDE [Concomitant]
     Active Substance: TIOTROPIUM BROMIDE
     Dosage: STILL ON THIS
     Dates: start: 20100630
  9. ASPIRIN. [Concomitant]
     Active Substance: ASPIRIN
     Dosage: STILL ON THIS.
     Dates: start: 20001127
  10. HYDROXYZINE HYDROCHLORIDE. [Interacting]
     Active Substance: HYDROXYZINE HYDROCHLORIDE
     Dosage: AT NIGHT
     Route: 048
  11. ACIDEX (CALCIUM CARBONATE (+) SODIUM ALGINATE (+) SODIUM BICARBONATE) [Concomitant]
     Active Substance: CALCIUM CARBONATE\SODIUM ALGINATE\SODIUM BICARBONATE
     Dosage: STILL ON THIS.
     Dates: start: 20070419
  12. SERETIDE [Concomitant]
     Active Substance: FLUTICASONE FUROATE\SALMETEROL XINAFOATE
     Dosage: STILL ON THIS.
     Dates: start: 20100630
  13. TERBUTALINE SULFATE. [Concomitant]
     Active Substance: TERBUTALINE SULFATE
     Dosage: STILL ON THIS
     Dates: start: 20100512
  14. TRAMADOL HYDROCHLORIDE. [Concomitant]
     Active Substance: TRAMADOL HYDROCHLORIDE
     Dosage: STILL ON THIS.
     Dates: start: 20130122

REACTIONS (3)
  - Drug interaction [Unknown]
  - Abdominal pain upper [Recovered/Resolved]
  - Vomiting [Recovered/Resolved]
